FAERS Safety Report 12234045 (Version 2)
Quarter: 2016Q2

REPORT INFORMATION
  Report Type: Spontaneous
  Country: FR (occurrence: FR)
  Receive Date: 20160404
  Receipt Date: 20160412
  Transmission Date: 20160815
  Serious: Yes (Hospitalization, Other)
  Sender: FDA-Public Use
  Company Number: FR-ASTRAZENECA-2016SE32447

PATIENT
  Age: 23608 Day
  Sex: Male

DRUGS (13)
  1. INEXIUM [Suspect]
     Active Substance: ESOMEPRAZOLE
     Route: 048
     Dates: end: 20160313
  2. TIENAM [Concomitant]
     Active Substance: CILASTATIN SODIUM\IMIPENEM
     Route: 042
     Dates: start: 20160227
  3. HYDROXYZINE [Suspect]
     Active Substance: HYDROXYZINE\HYDROXYZINE HYDROCHLORIDE
     Route: 048
     Dates: start: 20160308
  4. OXYCONTIN [Concomitant]
     Active Substance: OXYCODONE HYDROCHLORIDE
  5. TAHOR [Suspect]
     Active Substance: ATORVASTATIN CALCIUM
     Indication: DYSLIPIDAEMIA
     Route: 048
     Dates: start: 20160309, end: 20160314
  6. LOVENOX [Concomitant]
     Active Substance: ENOXAPARIN SODIUM
     Indication: DEEP VEIN THROMBOSIS
     Route: 058
  7. LANTUS [Concomitant]
     Active Substance: INSULIN GLARGINE
  8. PREVISCAN [Concomitant]
     Active Substance: FLUINDIONE
  9. ALPRAZOLAM. [Concomitant]
     Active Substance: ALPRAZOLAM
  10. BACTRIM [Concomitant]
     Active Substance: SULFAMETHOXAZOLE\TRIMETHOPRIM
  11. KETOCONAZOLE. [Suspect]
     Active Substance: KETOCONAZOLE
     Indication: PITUITARY-DEPENDENT CUSHING^S SYNDROME
     Route: 048
     Dates: start: 20160305, end: 20160313
  12. ALDACTONE [Concomitant]
     Active Substance: SPIRONOLACTONE
  13. HYDROCORTISONE. [Concomitant]
     Active Substance: HYDROCORTISONE

REACTIONS (8)
  - Acute respiratory distress syndrome [Unknown]
  - Pulmonary embolism [Unknown]
  - Post procedural sepsis [Unknown]
  - Hypogonadism [Unknown]
  - Dermatitis exfoliative [Recovering/Resolving]
  - Aortic aneurysm rupture [Unknown]
  - Enterobacter infection [Unknown]
  - Localised infection [Unknown]

NARRATIVE: CASE EVENT DATE: 20160313
